FAERS Safety Report 8366926-1 (Version None)
Quarter: 2012Q2

REPORT INFORMATION
  Report Type: 
  Country: None (occurrence: None)
  Receive Date: 20120517
  Receipt Date: 20120502
  Transmission Date: 20120825
  Serious: Yes (Other)
  Sender: FDA-Public Use
  Company Number: CH-ROCHE-1066986

PATIENT
  Age: 82 Year
  Sex: Female

DRUGS (2)
  1. LUCENTIS [Suspect]
     Indication: AGE-RELATED MACULAR DEGENERATION
     Route: 050
     Dates: start: 20110928, end: 20111005
  2. LUCENTIS [Suspect]
     Route: 050
     Dates: start: 20120125

REACTIONS (3)
  - VERTIGO [None]
  - ISCHAEMIC STROKE [None]
  - EMBOLISM [None]
